FAERS Safety Report 5675562-7 (Version None)
Quarter: 2008Q1

REPORT INFORMATION
  Report Type: 
  Country: None (occurrence: None)
  Receive Date: 20080321
  Receipt Date: 20080313
  Transmission Date: 20080703
  Serious: Yes (Other)
  Sender: FDA-Public Use
  Company Number: BE-JNJFOC-20080303977

PATIENT
  Sex: Female

DRUGS (2)
  1. CAELYX [Suspect]
     Indication: BREAST CANCER
     Route: 042
  2. CYCLOPHOSPHAMIDE [Concomitant]
     Indication: BREAST CANCER
     Route: 042

REACTIONS (2)
  - DRUG INTOLERANCE [None]
  - NEUTROPENIA [None]
